FAERS Safety Report 5080138-9 (Version None)
Quarter: 2006Q3

REPORT INFORMATION
  Report Type: 
  Country: None (occurrence: None)
  Receive Date: 20060810
  Receipt Date: 20060801
  Transmission Date: 20061208
  Serious: Yes (Hospitalization)
  Sender: FDA-Public Use
  Company Number: 2006094853

PATIENT
  Age: 86 Year
  Sex: Female
  Weight: 38 kg

DRUGS (7)
  1. NORVASC [Suspect]
     Indication: DRUG USE FOR UNKNOWN INDICATION
     Dosage: 2.5 MG (2.5 MG, QD), ORAL
     Route: 048
     Dates: start: 20030901, end: 20060714
  2. NIFLAN (PRANOPROFEN) [Suspect]
     Indication: DRUG USE FOR UNKNOWN INDICATION
     Dosage: (TID), ORAL
     Route: 048
     Dates: start: 20050216, end: 20060714
  3. PAROXETINE HCL [Suspect]
     Indication: DRUG USE FOR UNKNOWN INDICATION
     Dosage: 20 MG (20 MG, QD), ORAL
     Route: 048
     Dates: start: 20050413, end: 20060714
  4. ALUSA (ALDIOXA) [Concomitant]
  5. DAI-KENCHU-TO (DAI-KENCHU-TO) [Concomitant]
  6. SLOW-K [Concomitant]
  7. OTHER DERMATOLOGICAL PREPARATIONS (OTHER DERMATOLOGICAL PREPARATIONS) [Concomitant]

REACTIONS (4)
  - EOSINOPHIL COUNT INCREASED [None]
  - PLATELET COUNT DECREASED [None]
  - PRURITUS [None]
  - PYREXIA [None]
